FAERS Safety Report 9907648 (Version 2)
Quarter: 2014Q1

REPORT INFORMATION
  Report Type: Spontaneous
  Country: US (occurrence: US)
  Receive Date: 20140219
  Receipt Date: 20140306
  Transmission Date: 20141002
  Serious: Yes (Hospitalization)
  Sender: FDA-Public Use
  Company Number: US-BIOGENIDEC-2014BI013872

PATIENT
  Sex: Female

DRUGS (19)
  1. AVONEX [Suspect]
     Indication: MULTIPLE SCLEROSIS
     Route: 030
  2. AVONEX [Suspect]
     Indication: MULTIPLE SCLEROSIS
     Route: 030
  3. AVONEX [Suspect]
     Indication: MULTIPLE SCLEROSIS
     Route: 030
     Dates: end: 20131028
  4. ACETAMINOPHEN [Concomitant]
  5. ATENOLOL [Concomitant]
  6. BACLOFEN [Concomitant]
  7. VENLAFAXINE [Concomitant]
  8. FAMOTIDINE [Concomitant]
  9. GABAPENTIN [Concomitant]
  10. KETOCONAZOLE [Concomitant]
  11. LACTOBACILLUS [Concomitant]
  12. LASIX [Concomitant]
  13. MAGNESIUM [Concomitant]
  14. METFORMIN [Concomitant]
  15. OXYCODONE [Concomitant]
  16. POLYETHYLENE GLYCOL [Concomitant]
  17. SENEKOT [Concomitant]
  18. SPIRONOLACTONE [Concomitant]
  19. VITAMIN D [Concomitant]

REACTIONS (18)
  - Cellulitis [Unknown]
  - Hypoaesthesia [Unknown]
  - Impaired healing [Unknown]
  - Diabetic ulcer [Unknown]
  - Lymphoedema [Unknown]
  - Diabetes mellitus [Unknown]
  - Obesity [Unknown]
  - Hypertension [Unknown]
  - Wound [Unknown]
  - Injury [Unknown]
  - Skin disorder [Unknown]
  - Constipation [Unknown]
  - Osteoarthritis [Unknown]
  - Personality disorder [Unknown]
  - Pain [Unknown]
  - Depression [Unknown]
  - Wound infection [Recovered/Resolved]
  - Wound infection staphylococcal [Recovered/Resolved]
